FAERS Safety Report 17534931 (Version 3)
Quarter: 2020Q2

REPORT INFORMATION
  Report Type: Spontaneous
  Country: US (occurrence: US)
  Receive Date: 20200312
  Receipt Date: 20200609
  Transmission Date: 20200713
  Serious: Yes (Other)
  Sender: FDA-Public Use
  Company Number: US-AKCEA THERAPEUTICS-2019IS001807

PATIENT

DRUGS (2)
  1. TEGSEDI [Suspect]
     Active Substance: INOTERSEN SODIUM
     Indication: HEREDITARY NEUROPATHIC AMYLOIDOSIS
     Dosage: 284 MG, QW
     Route: 058
     Dates: start: 20191126, end: 20191220
  2. TEGSEDI [Suspect]
     Active Substance: INOTERSEN SODIUM
     Dosage: UNK
     Route: 065

REACTIONS (7)
  - Lymphadenopathy [Unknown]
  - Sarcoidosis [Unknown]
  - Flank pain [Recovered/Resolved]
  - Abdominal discomfort [Unknown]
  - Fatigue [Unknown]
  - Product dose omission [Unknown]
  - Injection site erythema [Recovered/Resolved]

NARRATIVE: CASE EVENT DATE: 2019
